FAERS Safety Report 5078054-1 (Version None)
Quarter: 2006Q3

REPORT INFORMATION
  Report Type: 
  Country: None (occurrence: None)
  Receive Date: 20060720
  Receipt Date: 20050927
  Transmission Date: 20061208
  Serious: Yes (Other)
  Sender: FDA-Public Use
  Company Number: 2005133927

PATIENT
  Age: 48 Year
  Sex: Male
  Weight: 86.1834 kg

DRUGS (6)
  1. CELEBREX [Suspect]
     Indication: PROCEDURAL PAIN
     Dosage: 400 MG (200 MG, 2 IN 1 D)
     Dates: start: 19990101, end: 20020101
  2. MARIJUANA (CANNABIS) [Concomitant]
  3. IBUPROFEN [Concomitant]
  4. ALEVE [Concomitant]
  5. ZESTRIL [Concomitant]
  6. NEURONTIN [Concomitant]

REACTIONS (5)
  - ARTHRITIS [None]
  - CHEST PAIN [None]
  - DRUG INEFFECTIVE [None]
  - MYOCARDIAL INFARCTION [None]
  - STRESS [None]
